FAERS Safety Report 15861277 (Version 3)
Quarter: 2019Q3

REPORT INFORMATION
  Report Type: Spontaneous
  Country: US (occurrence: US)
  Receive Date: 20190124
  Receipt Date: 20190802
  Transmission Date: 20191004
  Serious: Yes (Other)
  Sender: FDA-Public Use
  Company Number: US-TAKEDA-2019TUS001853

PATIENT

DRUGS (6)
  1. PANTOPRAZOLE [Suspect]
     Active Substance: PANTOPRAZOLE
     Indication: DYSPEPSIA
     Dosage: UNK
     Route: 048
     Dates: start: 20080727, end: 20131114
  2. DEXILANT [Suspect]
     Active Substance: DEXLANSOPRAZOLE
     Indication: DYSPEPSIA
     Dosage: UNK
     Route: 048
     Dates: start: 20080724, end: 20131114
  3. NEXIUM [Suspect]
     Active Substance: ESOMEPRAZOLE MAGNESIUM
     Indication: DYSPEPSIA
     Dosage: 40 MILLIGRAM, QD
     Route: 048
     Dates: start: 20080724, end: 20131114
  4. OMEPRAZOLE. [Suspect]
     Active Substance: OMEPRAZOLE
     Indication: DYSPEPSIA
     Dosage: 40 MILLIGRAM, QD
     Route: 048
     Dates: start: 201904
  5. PANTOPRAZOLE [Suspect]
     Active Substance: PANTOPRAZOLE
     Dosage: 60 MILLIGRAM, QD
     Route: 048
     Dates: start: 2013, end: 2018
  6. DEXILANT [Suspect]
     Active Substance: DEXLANSOPRAZOLE
     Dosage: 60 MILLIGRAM
     Route: 048
     Dates: start: 2013

REACTIONS (1)
  - Chronic kidney disease [Not Recovered/Not Resolved]

NARRATIVE: CASE EVENT DATE: 201206
